FAERS Safety Report 8253532 (Version 2)
Quarter: 2012Q4

REPORT INFORMATION
  Report Type: 
  Country: US (occurrence: US)
  Receive Date: 20111118
  Receipt Date: 20121023
  Transmission Date: 20130627
  Serious: No
  Sender: FDA-Public Use
  Company Number: US-AMGEN-USASP2011019415

PATIENT
  Age: 61 Year
  Sex: Female
  Weight: 58.96 kg

DRUGS (16)
  1. ENBREL [Suspect]
     Indication: RHEUMATOID ARTHRITIS
     Dosage: 50 mg, qwk
     Route: 058
     Dates: start: 20110406, end: 201112
  2. HUMIRA [Concomitant]
     Dosage: 40 mg, UNK
     Route: 058
     Dates: start: 201112
  3. METHOTREXATE [Concomitant]
     Dosage: 2.5 mg, UNK
     Route: 048
  4. ATENOLOL [Concomitant]
     Dosage: 25 mg, UNK
  5. ATENOLOL [Concomitant]
     Dosage: 100 mg, UNK
  6. PREMARIN [Concomitant]
     Dosage: 0.3 mg, UNK
  7. VIT D [Concomitant]
     Dosage: 50000 IU, UNK
  8. CALTRATE +D [Concomitant]
  9. ASA [Concomitant]
     Dosage: 81 mg, UNK
  10. PHENERGAN [Concomitant]
     Dosage: 25 mg, UNK
  11. NEURONTIN [Concomitant]
     Dosage: 300 mg, UNK
  12. ZOCOR [Concomitant]
     Dosage: 10 mg, UNK
  13. FOLIC ACID [Concomitant]
  14. CALCIUM [Concomitant]
     Dosage: 500 mg, UNK
  15. BABY ASPIRIN [Concomitant]
     Dosage: 81 mg, UNK
  16. FLEXERIL [Concomitant]
     Dosage: 10 mg, UNK

REACTIONS (4)
  - Pain in extremity [Not Recovered/Not Resolved]
  - Finger deformity [Not Recovered/Not Resolved]
  - Nausea [Not Recovered/Not Resolved]
  - Drug ineffective [Unknown]
